FAERS Safety Report 9108096 (Version 2)
Quarter: 2013Q1

REPORT INFORMATION
  Report Type: Spontaneous
  Country: FR (occurrence: FR)
  Receive Date: 20130221
  Receipt Date: 20130327
  Transmission Date: 20140127
  Serious: Yes (Hospitalization)
  Sender: FDA-Public Use
  Company Number: FR-ELI_LILLY_AND_COMPANY-FR201302003501

PATIENT
  Sex: Female
  Weight: 52 kg

DRUGS (7)
  1. FORSTEO [Suspect]
     Dosage: 20 UG, QD
     Route: 058
     Dates: end: 20130131
  2. TANGANIL [Concomitant]
     Indication: VERTIGO
     Dosage: UNK
     Dates: start: 20130123, end: 20130130
  3. PANTOPRAZOL [Concomitant]
     Dosage: 20 MG, QD
     Dates: end: 20130131
  4. KARDEGIC [Concomitant]
     Dosage: 75 MG, QD
  5. PARACETAMOL [Concomitant]
     Dosage: UNK
     Dates: end: 20130131
  6. CODEINE [Concomitant]
     Dosage: UNK
     Dates: end: 20130131
  7. CACIT D3 [Concomitant]

REACTIONS (9)
  - Hypocalcaemia [Recovering/Resolving]
  - Convulsion [Recovered/Resolved]
  - Hypomagnesaemia [Recovering/Resolving]
  - Electrocardiogram QT prolonged [Recovered/Resolved]
  - Vitamin D deficiency [Recovering/Resolving]
  - Iron deficiency [Recovering/Resolving]
  - Vitamin B12 deficiency [Recovering/Resolving]
  - Anaemia [Recovering/Resolving]
  - Gastroenteritis [Unknown]
